FAERS Safety Report 6673542-6 (Version None)
Quarter: 2010Q1

REPORT INFORMATION
  Report Type: 
  Country: None (occurrence: None)
  Receive Date: 20100329
  Receipt Date: 20090617
  Transmission Date: 20100710
  Serious: Yes (Other)
  Sender: FDA-Public Use
  Company Number: 2009210168

PATIENT

DRUGS (1)
  1. GEODON [Suspect]
     Dosage: 80 MG

REACTIONS (1)
  - EXTRAPYRAMIDAL DISORDER [None]
